FAERS Safety Report 13682586 (Version 2)
Quarter: 2017Q2

REPORT INFORMATION
  Report Type: Spontaneous
  Country: US (occurrence: US)
  Receive Date: 20170623
  Receipt Date: 20170623
  Transmission Date: 20170830
  Serious: No
  Sender: FDA-Public Use
  Company Number: US-MALLINCKRODT-T201602515

PATIENT
  Sex: Female
  Weight: 141 kg

DRUGS (2)
  1. H.P. ACTHAR [Suspect]
     Active Substance: CORTICOTROPIN
     Indication: ARTHRITIS
     Dosage: 80 UNITS TWICE WEEKLY
     Route: 065
     Dates: end: 201604
  2. H.P. ACTHAR [Suspect]
     Active Substance: CORTICOTROPIN
     Indication: ANKYLOSING SPONDYLITIS
     Dosage: 40 UNITS TWICE WEEKLY
     Route: 065
     Dates: start: 201604

REACTIONS (3)
  - Contusion [Unknown]
  - Injection site bruising [Unknown]
  - Blood glucose increased [Not Recovered/Not Resolved]
